FAERS Safety Report 17048749 (Version 1)
Quarter: 2019Q4

REPORT INFORMATION
  Report Type: Spontaneous
  Country: US (occurrence: US)
  Receive Date: 20191021
  Receipt Date: 20191021
  Transmission Date: 20200122
  Serious: Yes (Other)
  Sender: FDA-Public Use
  Company Number: None

PATIENT
  Sex: Female

DRUGS (14)
  1. NUEDEXTA [Suspect]
     Active Substance: DEXTROMETHORPHAN HYDROBROMIDE\QUINIDINE SULFATE
     Indication: AFFECT LABILITY
     Route: 048
     Dates: start: 20181109
  2. AMANTADINE. [Concomitant]
     Active Substance: AMANTADINE HYDROCHLORIDE
  3. BALOFEN [Concomitant]
  4. NITROFURANTOIN. [Concomitant]
     Active Substance: NITROFURANTOIN
  5. VESLCARE [Concomitant]
  6. AMPYRA [Concomitant]
     Active Substance: DALFAMPRIDINE
  7. FLOMAX [Concomitant]
     Active Substance: TAMSULOSIN HYDROCHLORIDE
  8. BUMETANIDE. [Concomitant]
     Active Substance: BUMETANIDE
  9. H.P. ACTHAR [Concomitant]
     Active Substance: CORTICOTROPIN
  10. AMPYRA [Concomitant]
     Active Substance: DALFAMPRIDINE
  11. CLONAZEPAM. [Concomitant]
     Active Substance: CLONAZEPAM
  12. SOLU-MEDROL INJ [Concomitant]
  13. HYDROCHLOROTHIAZIDE. [Concomitant]
     Active Substance: HYDROCHLOROTHIAZIDE
  14. HYDROCO/APAP [Concomitant]
     Active Substance: ACETAMINOPHEN\HYDROCODONE

REACTIONS (2)
  - Multiple sclerosis [None]
  - Fall [None]
